FAERS Safety Report 10982191 (Version 1)
Quarter: 2015Q2

REPORT INFORMATION
  Report Type: Spontaneous
  Country: US (occurrence: US)
  Receive Date: 20150403
  Receipt Date: 20150403
  Transmission Date: 20150821
  Serious: Yes (Hospitalization)
  Sender: FDA-Public Use
  Company Number: US-AMGEN-USASP2015029953

PATIENT
  Age: 76 Year
  Sex: Female

DRUGS (1)
  1. ENBREL [Suspect]
     Active Substance: ETANERCEPT
     Indication: RHEUMATOID ARTHRITIS
     Dosage: 50 MG, QWK
     Route: 065
     Dates: start: 2011, end: 20140330

REACTIONS (8)
  - Cardiac disorder [Recovered/Resolved]
  - Cellulitis [Recovered/Resolved]
  - Dyspnoea [Recovered/Resolved]
  - Aortic valve disease [Unknown]
  - Rash [Recovered/Resolved]
  - Peripheral swelling [Unknown]
  - Pruritus [Recovered/Resolved]
  - Joint swelling [Unknown]

NARRATIVE: CASE EVENT DATE: 201410
